FAERS Safety Report 10078637 (Version 2)
Quarter: 2014Q2

REPORT INFORMATION
  Report Type: Spontaneous
  Country: US (occurrence: None)
  Receive Date: 20140411
  Receipt Date: 20140501
  Transmission Date: 20141212
  Serious: Yes (Other)
  Sender: FDA-Public Use
  Company Number: 2014-US-004118

PATIENT
  Age: 57 Year
  Sex: Male
  Weight: 72.6 kg

DRUGS (1)
  1. XYREM (SODIUM OXYBATE) ORAL SOLUTION, 500MG/ML [Suspect]
     Indication: NARCOLEPSY
     Route: 048
     Dates: start: 201107, end: 201108

REACTIONS (4)
  - Hypotension [None]
  - Adrenocortical insufficiency acute [None]
  - Hypoaesthesia [None]
  - Paraesthesia [None]
